FAERS Safety Report 4517931-4 (Version None)
Quarter: 2004Q4

REPORT INFORMATION
  Report Type: 
  Country: None (occurrence: None)
  Receive Date: 20041130
  Receipt Date: 20041117
  Transmission Date: 20050328
  Serious: Yes (Disabling, Other)
  Sender: FDA-Public Use
  Company Number: 200410719BNE

PATIENT
  Age: 56 Year
  Sex: Female

DRUGS (11)
  1. MOXIFLOXACIN HYDROCHLORIDE [Suspect]
     Indication: LOWER RESPIRATORY TRACT INFECTION
     Dosage: 400 MG, TOTAL DAILY, ORAL
     Route: 048
     Dates: start: 20040517, end: 20040527
  2. PREDNISOLONE [Concomitant]
  3. PREMARIN [Concomitant]
  4. ALBUTEROL [Concomitant]
  5. ALENDRONATE SODIUM [Concomitant]
  6. WARFARIN SODIUM [Concomitant]
  7. SALMETEROL XINAFOATE [Concomitant]
  8. CO-DYDRAMOL [Concomitant]
  9. ADCAL-D3 [Concomitant]
  10. AMOXICILLIN [Concomitant]
  11. BECLOMETHASONE DIPROPIONATE [Concomitant]

REACTIONS (2)
  - DEEP VEIN THROMBOSIS [None]
  - TENDON RUPTURE [None]
